FAERS Safety Report 9140964 (Version 1)
Quarter: 2013Q1

REPORT INFORMATION
  Report Type: Spontaneous
  Country: DE (occurrence: DE)
  Receive Date: 20130305
  Receipt Date: 20130305
  Transmission Date: 20140127
  Serious: Yes (Other)
  Sender: FDA-Public Use
  Company Number: GXKR2013DE000997

PATIENT
  Sex: Female

DRUGS (2)
  1. AMOXICLAV [Suspect]
     Indication: PNEUMONIA
     Route: 048
  2. METHADDICT [Interacting]
     Indication: DRUG DEPENDENCE
     Route: 048

REACTIONS (2)
  - Withdrawal syndrome [Recovered/Resolved]
  - Inhibitory drug interaction [Recovered/Resolved]
